FAERS Safety Report 5786571-1 (Version None)
Quarter: 2008Q2

REPORT INFORMATION
  Report Type: 
  Country: None (occurrence: None)
  Receive Date: 20080624
  Receipt Date: 20070806
  Transmission Date: 20081010
  Serious: No
  Sender: FDA-Public Use
  Company Number: US-ASTRAZENECA-2007UW19000

PATIENT
  Age: 56 Year
  Sex: Female
  Weight: 81.6 kg

DRUGS (3)
  1. PULMICORT FLEXHALER [Suspect]
     Indication: ASTHMA
     Route: 055
  2. ALBUTEROL [Concomitant]
  3. LISINOPRIL [Concomitant]

REACTIONS (2)
  - ABDOMINAL PAIN [None]
  - CONSTIPATION [None]
